FAERS Safety Report 6895190-5 (Version None)
Quarter: 2010Q3

REPORT INFORMATION
  Report Type: 
  Country: None (occurrence: None)
  Receive Date: 20100802
  Receipt Date: 20100720
  Transmission Date: 20110219
  Serious: Yes (Hospitalization)
  Sender: FDA-Public Use
  Company Number: PHHY2010CY47303

PATIENT
  Sex: Female

DRUGS (1)
  1. LEPONEX [Suspect]
     Dosage: 400 MG DAILY

REACTIONS (5)
  - FATIGUE [None]
  - LUNG INFECTION [None]
  - POLYMYALGIA RHEUMATICA [None]
  - PYREXIA [None]
  - WHITE BLOOD CELL COUNT INCREASED [None]
